FAERS Safety Report 18056714 (Version 1)
Quarter: 2020Q3

REPORT INFORMATION
  Report Type: Spontaneous
  Country: IN (occurrence: IN)
  Receive Date: 20200722
  Receipt Date: 20200722
  Transmission Date: 20201103
  Serious: Yes (Hospitalization)
  Sender: FDA-Public Use
  Company Number: IN-ANIPHARMA-2020-IN-000095

PATIENT
  Age: 16 Year
  Sex: Female

DRUGS (2)
  1. ZINC. [Concomitant]
     Active Substance: ZINC
     Dosage: 50 MG 3 TIMES DAILY
  2. PENICILLAMINE (NON?SPECIFIC) [Suspect]
     Active Substance: PENICILLAMINE
     Indication: HEPATO-LENTICULAR DEGENERATION
     Dosage: 250 MG 3 TIMES DAILY

REACTIONS (1)
  - Fibroadenoma of breast [Recovered/Resolved]
